FAERS Safety Report 4869331-5 (Version None)
Quarter: 2005Q4

REPORT INFORMATION
  Report Type: 
  Country: None (occurrence: None)
  Receive Date: 20051228
  Receipt Date: 20051228
  Transmission Date: 20060501
  Serious: Yes (Life-Threatening, Other)
  Sender: FDA-Public Use
  Company Number: None

PATIENT
  Sex: Female
  Weight: 80.2867 kg

DRUGS (8)
  1. MEGACE [Suspect]
     Indication: DECREASED APPETITE
     Dosage: 100 MG BID PO
     Route: 048
  2. ASPIRIN [Concomitant]
  3. LORAZEPAM [Concomitant]
  4. MULTI-VITAMIN [Concomitant]
  5. ATENOLOL [Concomitant]
  6. NITROFURANTOIN [Concomitant]
  7. HYDROCHLOROTHIAZIDE [Concomitant]
  8. MIRALAX [Concomitant]

REACTIONS (1)
  - PULMONARY EMBOLISM [None]
